FAERS Safety Report 21542974 (Version 1)
Quarter: 2022Q4

REPORT INFORMATION
  Report Type: Spontaneous
  Country: US (occurrence: US)
  Receive Date: 20221102
  Receipt Date: 20221102
  Transmission Date: 20230112
  Serious: No
  Sender: FDA-Public Use
  Company Number: US-TEVA-2022-US-2817000

PATIENT
  Age: 24 Year
  Sex: Male

DRUGS (1)
  1. QNASL [Suspect]
     Active Substance: BECLOMETHASONE DIPROPIONATE
     Indication: Product used for unknown indication
     Dosage: STRENGTH: 80 MCG

REACTIONS (4)
  - Dyspnoea [Unknown]
  - Hypersensitivity [Unknown]
  - Device delivery system issue [Unknown]
  - Product cleaning inadequate [Unknown]

NARRATIVE: CASE EVENT DATE: 20220901
